FAERS Safety Report 8138651-3 (Version None)
Quarter: 2012Q1

REPORT INFORMATION
  Report Type: 
  Country: None (occurrence: None)
  Receive Date: 20120215
  Receipt Date: 20120110
  Transmission Date: 20120608
  Serious: Yes (Hospitalization)
  Sender: FDA-Public Use
  Company Number: PHHY2012KR002440

PATIENT
  Sex: Female

DRUGS (2)
  1. CYCLOSPORINE [Concomitant]
  2. EXJADE [Suspect]
     Indication: IRON OVERLOAD
     Dosage: 1750 MG PER DAY
     Route: 048
     Dates: start: 20080701

REACTIONS (5)
  - VOMITING [None]
  - DIZZINESS [None]
  - DIARRHOEA [None]
  - LOSS OF CONSCIOUSNESS [None]
  - HAEMOGLOBIN DECREASED [None]
